FAERS Safety Report 17894968 (Version 1)
Quarter: 2020Q2

REPORT INFORMATION
  Report Type: Spontaneous
  Country: US (occurrence: US)
  Receive Date: 20200613
  Receipt Date: 20200613
  Transmission Date: 20200714
  Serious: Yes (Disabling)
  Sender: FDA-Public Use
  Company Number: None

PATIENT
  Age: 60 Year
  Sex: Male
  Weight: 59.4 kg

DRUGS (3)
  1. VITAMIN D 2000 [Concomitant]
     Active Substance: VITAMIN D NOS
  2. HYDROXYZINE 10 MG EACH [Suspect]
     Active Substance: HYDROXYZINE HYDROCHLORIDE
     Indication: PRURITUS
     Dosage: ?          QUANTITY:538 TABLET(S);?
     Route: 048
     Dates: start: 20180220, end: 20181210
  3. AZETALINE [Concomitant]

REACTIONS (2)
  - Mental disability [None]
  - Amnesia [None]

NARRATIVE: CASE EVENT DATE: 20180601
